FAERS Safety Report 8442391-0 (Version None)
Quarter: 2012Q2

REPORT INFORMATION
  Report Type: 
  Country: None (occurrence: None)
  Receive Date: 20120615
  Receipt Date: 20120110
  Transmission Date: 20120825
  Serious: No
  Sender: FDA-Public Use
  Company Number: US-NOVEN-12US003911

PATIENT
  Sex: Female

DRUGS (2)
  1. DAYTRANA [Suspect]
     Indication: PSYCHOMOTOR HYPERACTIVITY
     Dosage: 15 MG DAILY FOR 9 HOURS
     Route: 062
     Dates: start: 20110101
  2. DAYTRANA [Suspect]
     Dosage: 10 MG, UNK
     Route: 062
     Dates: start: 20110101, end: 20110101

REACTIONS (3)
  - PRODUCT QUALITY ISSUE [None]
  - APPLICATION SITE IRRITATION [None]
  - OFF LABEL USE [None]
